FAERS Safety Report 14004563 (Version 1)
Quarter: 2017Q3

REPORT INFORMATION
  Report Type: Spontaneous
  Country: GB (occurrence: GB)
  Receive Date: 20170922
  Receipt Date: 20170922
  Transmission Date: 20171128
  Serious: Yes (Other)
  Sender: FDA-Public Use
  Company Number: GB-BAYER-2017-177285

PATIENT
  Age: 38 Year
  Sex: Male

DRUGS (1)
  1. HELIXATE NEXGEN [Suspect]
     Active Substance: ANTIHEMOPHILIC FACTOR, HUMAN RECOMBINANT
     Dosage: 3 TIMES A WEEK

REACTIONS (1)
  - Haemorrhage [None]

NARRATIVE: CASE EVENT DATE: 2013
